FAERS Safety Report 26173670 (Version 1)
Quarter: 2025Q4

REPORT INFORMATION
  Report Type: Spontaneous
  Country: US (occurrence: US)
  Receive Date: 20251218
  Receipt Date: 20251218
  Transmission Date: 20260119
  Serious: Yes (Hospitalization, Other)
  Sender: BAXTER
  Company Number: US-MLMSERVICE-20251204-PI738358-00150-1

PATIENT
  Age: 28 Year
  Sex: Male

DRUGS (3)
  1. FLUCONAZOLE [Interacting]
     Active Substance: FLUCONAZOLE
     Indication: Coccidioidomycosis
     Dosage: UNK
     Route: 065
  2. COLCHICINE [Interacting]
     Active Substance: COLCHICINE
     Indication: Pericardial effusion
     Dosage: UNK
     Route: 065
  3. AMPHOTERICIN B [Concomitant]
     Active Substance: AMPHOTERICIN B
     Indication: Coccidioidomycosis
     Dosage: UNK
     Route: 065

REACTIONS (10)
  - Disseminated coccidioidomycosis [Unknown]
  - Dyspnoea [Unknown]
  - Muscular weakness [Unknown]
  - Fall [Unknown]
  - Weight decreased [Unknown]
  - Drug level above therapeutic [Unknown]
  - Inhibitory drug interaction [Unknown]
  - Vomiting [Unknown]
  - Drug intolerance [Unknown]
  - Vomiting [Unknown]
